FAERS Safety Report 7799018-0 (Version None)
Quarter: 2011Q4

REPORT INFORMATION
  Report Type: 
  Country: None (occurrence: None)
  Receive Date: 20111005
  Receipt Date: 20111005
  Transmission Date: 20120403
  Serious: Yes (Hospitalization)
  Sender: FDA-Public Use
  Company Number: None

PATIENT
  Age: 59 Year
  Sex: Female
  Weight: 85.7 kg

DRUGS (1)
  1. ARSENIC TRIOXIDE [Suspect]
     Indication: NON-SMALL CELL LUNG CANCER
     Dosage: 28.7MG IV TWICE A WEEK
     Route: 042
     Dates: start: 20110918

REACTIONS (4)
  - BILIARY DILATATION [None]
  - BILE DUCT OBSTRUCTION [None]
  - BLOOD BILIRUBIN INCREASED [None]
  - METASTASES TO LIVER [None]
